FAERS Safety Report 7608022 (Version 7)
Quarter: 2013Q2

REPORT INFORMATION
  Report Type: Spontaneous
  Country: US (occurrence: US)
  Receive Date: 20100927
  Receipt Date: 20130401
  Transmission Date: 20140414
  Serious: Yes (Other)
  Sender: FDA-Public Use
  Company Number: US-ASTRAZENECA-2009SE28726

PATIENT
  Age: 74 Year
  Sex: Female

DRUGS (7)
  1. ARIMIDEX [Suspect]
     Indication: BREAST CANCER METASTATIC
     Route: 048
  2. FASLODEX [Suspect]
     Route: 030
  3. TOPROL XL [Suspect]
     Indication: HYPERTENSION
     Route: 048
  4. CRESTOR [Suspect]
     Indication: BLOOD CHOLESTEROL ABNORMAL
     Route: 048
  5. ADRIAMYCIN [Suspect]
     Route: 065
     Dates: start: 2001
  6. CYTOXIN [Suspect]
     Route: 065
     Dates: start: 2001
  7. TAXOL [Suspect]
     Route: 065
     Dates: start: 2001

REACTIONS (19)
  - Breast neoplasm [Unknown]
  - Neoplasm progression [Unknown]
  - Lung neoplasm [Unknown]
  - Liver disorder [Unknown]
  - Lung disorder [Unknown]
  - Breast cancer metastatic [Unknown]
  - Lower limb fracture [Unknown]
  - Contusion [Unknown]
  - Fall [Unknown]
  - Influenza [Unknown]
  - Ear congestion [Unknown]
  - Limb injury [Unknown]
  - Neuropathy peripheral [Unknown]
  - Upper extremity mass [Unknown]
  - Stress [Unknown]
  - Diabetes mellitus [Unknown]
  - Psoriasis [Unknown]
  - Psoriasis [Unknown]
  - Cardiac disorder [Unknown]
